FAERS Safety Report 5581805-0 (Version None)
Quarter: 2008Q1

REPORT INFORMATION
  Report Type: 
  Country: None (occurrence: None)
  Receive Date: 20080104
  Receipt Date: 20071221
  Transmission Date: 20080703
  Serious: Yes (Other)
  Sender: FDA-Public Use
  Company Number: ES-AMGEN-UK257046

PATIENT
  Sex: Male
  Weight: 70 kg

DRUGS (11)
  1. ARANESP [Suspect]
     Indication: RENAL FAILURE CHRONIC
     Route: 058
     Dates: start: 20070913, end: 20071111
  2. ETHAMBUTOL HYDROCHLORIDE [Suspect]
     Route: 048
     Dates: start: 20070731
  3. CEMIDON [Suspect]
     Route: 048
     Dates: start: 20070731
  4. RIFINAH [Suspect]
     Route: 048
     Dates: start: 20070731, end: 20070901
  5. DILTIAZEM [Concomitant]
     Route: 048
  6. APROVEL [Concomitant]
  7. TORSEMIDE [Concomitant]
     Route: 048
  8. ZYLORIC [Concomitant]
     Route: 048
  9. EZETIMIBE [Concomitant]
     Route: 048
  10. ADIRO [Concomitant]
     Route: 048
  11. PREDNISOLONE [Concomitant]
     Dates: start: 20071220

REACTIONS (1)
  - APLASIA PURE RED CELL [None]
